FAERS Safety Report 8786761 (Version 1)
Quarter: 2012Q4

REPORT INFORMATION
  Report Type: Report from Study
  Country: US (occurrence: US)
  Receive Date: 20120914
  Receipt Date: 20120914
  Transmission Date: 20130627
  Serious: No
  Sender: FDA-Public Use
  Company Number: US-VERTEX PHARMACEUTICAL INC.-AE-2012-011165

PATIENT
  Age: 64 Year
  Sex: Male

DRUGS (7)
  1. EDARBYCLOR [Concomitant]
  2. INCIVEK [Suspect]
     Indication: HEPATITIS C
     Route: 048
  3. PEGASYS [Concomitant]
     Indication: HEPATITIS C
  4. RIBAPAK PAK [Concomitant]
     Indication: HEPATITIS C
  5. AMBIEN [Concomitant]
     Indication: HEPATITIS C
  6. DOXAZOSIN [Concomitant]
  7. NEXIUM [Concomitant]

REACTIONS (5)
  - Pollakiuria [Unknown]
  - Insomnia [Unknown]
  - Vomiting [Unknown]
  - Nausea [Unknown]
  - Pruritus [Unknown]
